FAERS Safety Report 11074091 (Version 1)
Quarter: 2015Q2

REPORT INFORMATION
  Report Type: Spontaneous
  Country: US (occurrence: None)
  Receive Date: 20150427
  Receipt Date: 20150427
  Transmission Date: 20150821
  Serious: Yes (Other)
  Sender: FDA-Public Use
  Company Number: 2015AKN00229

PATIENT
  Age: 22 Year
  Sex: Female

DRUGS (1)
  1. MYORISAN [Suspect]
     Active Substance: ISOTRETINOIN
     Dates: start: 20150324

REACTIONS (2)
  - Maternal exposure before pregnancy [None]
  - Pregnancy [None]

NARRATIVE: CASE EVENT DATE: 2015
